FAERS Safety Report 10462974 (Version 3)
Quarter: 2014Q4

REPORT INFORMATION
  Report Type: Spontaneous
  Country: FR (occurrence: FR)
  Receive Date: 20140919
  Receipt Date: 20141016
  Transmission Date: 20150528
  Serious: Yes (Life-Threatening, Hospitalization)
  Sender: FDA-Public Use
  Company Number: FR-ROCHE-1463716

PATIENT
  Sex: Male

DRUGS (8)
  1. ABSTRAL [Concomitant]
     Active Substance: FENTANYL CITRATE
     Indication: PAIN
     Dosage: 400 UNIT NOT REPORTED
     Route: 065
     Dates: start: 201310
  2. ZELBORAF [Suspect]
     Active Substance: VEMURAFENIB
     Indication: METASTATIC MALIGNANT MELANOMA
     Route: 048
     Dates: start: 20140808, end: 20140915
  3. SEROPLEX [Concomitant]
     Active Substance: ESCITALOPRAM OXALATE
     Indication: DEPRESSION
     Route: 048
     Dates: start: 201401
  4. TAZOCILLINE [Concomitant]
     Active Substance: PIPERACILLIN SODIUM\TAZOBACTAM SODIUM
  5. VANCOMYCINE [Concomitant]
     Active Substance: VANCOMYCIN
  6. NEUPOGEN [Concomitant]
     Active Substance: FILGRASTIM
  7. CIFLOX (FRANCE) [Concomitant]
     Active Substance: CIPROFLOXACIN
  8. DUROGESIC [Concomitant]
     Active Substance: FENTANYL
     Indication: PAIN
     Dosage: 112.5  UNIT NOT REPORTED
     Route: 065
     Dates: start: 201310

REACTIONS (1)
  - Agranulocytosis [Recovered/Resolved]

NARRATIVE: CASE EVENT DATE: 20140917
